FAERS Safety Report 6663648-X (Version None)
Quarter: 2010Q1

REPORT INFORMATION
  Report Type: 
  Country: None (occurrence: None)
  Receive Date: 20100331
  Receipt Date: 20100331
  Transmission Date: 20100710
  Serious: Yes (Hospitalization)
  Sender: FDA-Public Use
  Company Number: None

PATIENT
  Age: 65 Year
  Sex: Male
  Weight: 72.5755 kg

DRUGS (1)
  1. ELIGARD [Suspect]
     Indication: PROSTATE CANCER
     Dosage: 45 MG ONCE EVERY 6 MONTH SQ
     Route: 058
     Dates: start: 20090401, end: 20091001

REACTIONS (8)
  - ABNORMAL BEHAVIOUR [None]
  - AGGRESSION [None]
  - AGITATION [None]
  - COMPULSIVE SHOPPING [None]
  - INSOMNIA [None]
  - LOGORRHOEA [None]
  - PERSECUTORY DELUSION [None]
  - PRESSURE OF SPEECH [None]
